FAERS Safety Report 21183962 (Version 1)
Quarter: 2022Q3

REPORT INFORMATION
  Report Type: Spontaneous
  Country: FR (occurrence: FR)
  Receive Date: 20220808
  Receipt Date: 20220808
  Transmission Date: 20221027
  Serious: Yes (Death, Hospitalization, Other)
  Sender: FDA-Public Use
  Company Number: FR-NOVARTISPH-NVSC2022FR177942

PATIENT
  Age: 57 Year
  Sex: Female
  Weight: 76 kg

DRUGS (27)
  1. FUROSEMIDE [Suspect]
     Active Substance: FUROSEMIDE
     Indication: Product used for unknown indication
     Dosage: UNK
     Route: 065
     Dates: start: 20220619, end: 20220620
  2. PANTOPRAZOLE [Suspect]
     Active Substance: PANTOPRAZOLE
     Indication: Abdominal pain upper
     Dosage: UNK, QHS (1 UNIT AT NIGHT)
     Route: 065
     Dates: start: 20220619, end: 20220620
  3. METOCLOPRAMIDE [Suspect]
     Active Substance: METOCLOPRAMIDE
     Indication: Nausea
     Dosage: UNK, BID (1 UNIT)
     Route: 065
     Dates: start: 20220619, end: 20220620
  4. MIDAZOLAM [Suspect]
     Active Substance: MIDAZOLAM
     Indication: Product used for unknown indication
     Dosage: UNK (50 MG/J)
     Route: 065
     Dates: start: 20220620, end: 20220620
  5. METRONIDAZOLE [Suspect]
     Active Substance: METRONIDAZOLE
     Indication: Product used for unknown indication
     Dosage: UNK UNK, TID (1 UNIT)
     Route: 065
     Dates: start: 20220620, end: 20220620
  6. CELLCEPT [Suspect]
     Active Substance: MYCOPHENOLATE MOFETIL
     Indication: Prophylaxis against transplant rejection
     Dosage: UNK UNK, BID (1 UNIT)
     Route: 065
     Dates: start: 20220619, end: 20220620
  7. MORPHINE [Suspect]
     Active Substance: MORPHINE
     Indication: Pain
     Dosage: 10 MG, Q24H (10MG/24H)
     Route: 065
     Dates: start: 20220619
  8. SUFENTANIL [Suspect]
     Active Substance: SUFENTANIL
     Indication: Product used for unknown indication
     Dosage: UNK (250?G/J)
     Route: 065
     Dates: start: 20220620, end: 20220620
  9. DEFITELIO [Suspect]
     Active Substance: DEFIBROTIDE SODIUM
     Indication: Venoocclusive disease
     Dosage: 450 MG, Q6H (200 MG/2.5 ML, 450 MG EVERY 6 HOURS)
     Route: 065
     Dates: start: 20220615
  10. PROPOFOL [Suspect]
     Active Substance: PROPOFOL
     Indication: Product used for unknown indication
     Dosage: UNK (20 MG/J)
     Route: 065
     Dates: start: 20220620, end: 20220620
  11. NPLATE [Suspect]
     Active Substance: ROMIPLOSTIM
     Indication: Immune thrombocytopenia
     Dosage: 70 UG, QW (70 UG/WEEK)
     Route: 065
  12. TACROLIMUS [Suspect]
     Active Substance: TACROLIMUS
     Indication: Prophylaxis against transplant rejection
     Dosage: UNK UNK, QD (3 UNIT)
     Route: 065
     Dates: start: 20220619, end: 20220620
  13. TACROLIMUS [Suspect]
     Active Substance: TACROLIMUS
     Dosage: UNK UNK, QD (3 UNIT)
     Route: 065
     Dates: start: 20220522
  14. NOREPINEPHRINE [Suspect]
     Active Substance: NOREPINEPHRINE
     Indication: Hypertension
     Dosage: UNK
     Route: 065
     Dates: start: 20220619, end: 20220620
  15. CELLCEPT [Suspect]
     Active Substance: MYCOPHENOLATE MOFETIL
     Indication: Prophylaxis against transplant rejection
     Dosage: UNK UNK, BID (0.5 UNIT)
     Route: 065
     Dates: start: 20220616
  16. LINEZOLID [Suspect]
     Active Substance: LINEZOLID
     Indication: Product used for unknown indication
     Dosage: UNK, BID (1 UNIT)
     Route: 065
     Dates: start: 20220620, end: 20220620
  17. PHLOROGLUCINOL [Suspect]
     Active Substance: PHLOROGLUCINOL
     Indication: Pain
     Dosage: UNK UNK, TID (1 UNIT)
     Route: 065
     Dates: start: 20220619, end: 20220620
  18. NEFOPAM [Suspect]
     Active Substance: NEFOPAM
     Indication: Pain
     Dosage: 60 MG, QD (60 MILLIGRAM, QD)
     Route: 065
     Dates: start: 20220619, end: 20220620
  19. PENTACARINAT [Suspect]
     Active Substance: PENTAMIDINE ISETHIONATE
     Indication: Infection prophylaxis
     Dosage: UNK, QMO (1/MONTH)
     Route: 065
     Dates: start: 20220619, end: 20220620
  20. METHYLPREDNISOLONE [Suspect]
     Active Substance: METHYLPREDNISOLONE
     Indication: Blood disorder
     Dosage: UNK
     Route: 065
     Dates: start: 20220619, end: 20220620
  21. METHYLPREDNISOLONE [Suspect]
     Active Substance: METHYLPREDNISOLONE
     Dosage: 70 MG, QD (70MG/DAY)
     Route: 065
     Dates: start: 20220615
  22. CEFEPIME [Suspect]
     Active Substance: CEFEPIME HYDROCHLORIDE
     Indication: Febrile bone marrow aplasia
     Dosage: UNK UNK, Q8H (1 UNIT, TID)
     Route: 065
     Dates: start: 20220619, end: 20220620
  23. AMBISOME [Suspect]
     Active Substance: AMPHOTERICIN B
     Indication: Fungal infection
     Dosage: 210 MG, QD (210 MILLIGRAM, QD)
     Route: 065
     Dates: start: 20220619, end: 20220620
  24. URSODIOL [Suspect]
     Active Substance: URSODIOL
     Indication: Venoocclusive disease
     Dosage: UNK, Q8H (0.5, TID)
     Route: 065
     Dates: start: 20220428
  25. TRAMADOL HYDROCHLORIDE [Concomitant]
     Active Substance: TRAMADOL HYDROCHLORIDE
     Indication: Pain
     Dosage: 100 MG, Q6H (100 MILLIGRAM, EVERY 6 HOURS)
     Route: 065
     Dates: start: 20220518, end: 20220619
  26. VALACYCLOVIR HYDROCHLORIDE [Concomitant]
     Active Substance: VALACYCLOVIR HYDROCHLORIDE
     Indication: Infection prophylaxis
     Dosage: UNK
     Route: 065
     Dates: start: 20220619
  27. DOLIPRANE [Concomitant]
     Active Substance: ACETAMINOPHEN
     Indication: Pain
     Dosage: UNK UNK, QID (2 UNIT)
     Route: 065
     Dates: start: 20220428, end: 20220619

REACTIONS (4)
  - Acute respiratory distress syndrome [Fatal]
  - Abdominal pain [Fatal]
  - Death [Fatal]
  - Multiple organ dysfunction syndrome [Fatal]

NARRATIVE: CASE EVENT DATE: 20220618
